FAERS Safety Report 8576051-2 (Version None)
Quarter: 2012Q3

REPORT INFORMATION
  Report Type: 
  Country: None (occurrence: None)
  Receive Date: 20120724
  Receipt Date: 20120711
  Transmission Date: 20120928
  Serious: Yes (Life-Threatening, Other)
  Sender: FDA-Public Use
  Company Number: 2012P1050116

PATIENT
  Age: 80 Year
  Sex: Female

DRUGS (4)
  1. DEXTRAN INJ [Concomitant]
  2. UROKINASE [Concomitant]
  3. ARGATROBAN [Suspect]
     Indication: CEREBROVASCULAR DISORDER
     Dosage: 60 MG;QD;IV, 30 MG;X1, 60 MG;X1, 10 MG;QH;
  4. ARGATROBAN [Suspect]
     Indication: CEREBROVASCULAR DISORDER
     Dosage: 60 MG;QD;IV, 30 MG;X1, 60 MG;X1, 10 MG;QH;

REACTIONS (2)
  - HAEMORRHAGIC CEREBRAL INFARCTION [None]
  - DRUG INEFFECTIVE [None]
